FAERS Safety Report 11065915 (Version 3)
Quarter: 2015Q3

REPORT INFORMATION
  Report Type: Report from Study
  Country: US (occurrence: None)
  Receive Date: 20150423
  Receipt Date: 20150720
  Transmission Date: 20151125
  Serious: Yes (Hospitalization)
  Sender: FDA-Public Use
  Company Number: US-001867

PATIENT
  Age: 57 Year
  Sex: Female

DRUGS (8)
  1. GATTEX [Suspect]
     Active Substance: TEDUGLUTIDE\WATER
     Indication: SHORT-BOWEL SYNDROME
     Dosage: DF SUBCUTANEOUS
     Route: 058
     Dates: start: 20130918
  2. SOLUTIONS FOR PARENTERAL NUTRITION [Concomitant]
     Active Substance: AMINO ACIDS\DEXTROSE\ELECTROLYTES NOS
  3. IMODIUM [Concomitant]
     Active Substance: LOPERAMIDE HYDROCHLORIDE
  4. LOMOTIL [Concomitant]
     Active Substance: ATROPINE SULFATE\DIPHENOXYLATE HYDROCHLORIDE
  5. FIBER [Concomitant]
     Active Substance: PSYLLIUM HUSK
  6. PROTONIX /00661201/ [Concomitant]
  7. TRAZODONE [Concomitant]
     Active Substance: TRAZODONE HYDROCHLORIDE
  8. BENADRYL [Concomitant]
     Active Substance: DIPHENHYDRAMINE HYDROCHLORIDE

REACTIONS (10)
  - Vomiting [None]
  - Blood albumin decreased [None]
  - Malnutrition [None]
  - Hypovolaemia [None]
  - Abdominal pain [None]
  - Confusional state [None]
  - Lethargy [None]
  - Oedema peripheral [None]
  - Coordination abnormal [None]
  - Small intestinal obstruction [None]

NARRATIVE: CASE EVENT DATE: 20150404
